FAERS Safety Report 7422082-5 (Version None)
Quarter: 2011Q2

REPORT INFORMATION
  Report Type: 
  Country: None (occurrence: None)
  Receive Date: 20110418
  Receipt Date: 20110411
  Transmission Date: 20111010
  Serious: Yes (Hospitalization)
  Sender: FDA-Public Use
  Company Number: US-B.I. PHARMACEUTICALS,INC./RIDGEFIELD-2011-BP-01868BP

PATIENT
  Sex: Female

DRUGS (8)
  1. BENICAR [Concomitant]
     Dosage: 400 MG
     Route: 048
  2. PRADAXA [Suspect]
     Indication: ATRIAL FIBRILLATION
     Dosage: 300 MG
     Route: 048
     Dates: start: 20101201, end: 20101201
  3. COREG [Concomitant]
     Dosage: 6.25 MG
     Route: 048
  4. PROTONIX [Concomitant]
     Route: 048
  5. AMLODIPINE [Concomitant]
     Dosage: 25 MG
     Route: 048
  6. PRADAXA [Suspect]
     Indication: DRUG THERAPY CHANGED
  7. AMIODARONE [Concomitant]
     Indication: ATRIAL FIBRILLATION
     Dosage: 200 MG
     Route: 048
  8. LASIX [Concomitant]
     Dosage: 40 MG
     Route: 048

REACTIONS (4)
  - GOUT [None]
  - ANAEMIA [None]
  - BACK PAIN [None]
  - HAEMORRHAGE [None]
